FAERS Safety Report 7291353-8 (Version None)
Quarter: 2011Q1

REPORT INFORMATION
  Report Type: 
  Country: None (occurrence: None)
  Receive Date: 20110214
  Receipt Date: 20110209
  Transmission Date: 20110831
  Serious: Yes (Other)
  Sender: FDA-Public Use
  Company Number: A0912972A

PATIENT
  Age: 45 Year
  Sex: Female

DRUGS (2)
  1. XELODA [Suspect]
     Indication: BREAST CANCER
  2. TYKERB [Suspect]
     Indication: BREAST CANCER
     Dosage: 1250MG PER DAY
     Route: 048

REACTIONS (5)
  - PALMAR-PLANTAR ERYTHRODYSAESTHESIA SYNDROME [None]
  - MUCOSAL INFLAMMATION [None]
  - FATIGUE [None]
  - NEUTROPENIA [None]
  - NAUSEA [None]
